FAERS Safety Report 15810039 (Version 1)
Quarter: 2019Q1

REPORT INFORMATION
  Report Type: Spontaneous
  Country: US (occurrence: US)
  Receive Date: 20190111
  Receipt Date: 20190111
  Transmission Date: 20190417
  Serious: No
  Sender: FDA-Public Use
  Company Number: US-ROCHE-2134455

PATIENT
  Sex: Female
  Weight: 50.85 kg

DRUGS (8)
  1. BENDEKA [Interacting]
     Active Substance: BENDAMUSTINE HYDROCHLORIDE
     Dosage: CYCLE 2
     Route: 065
     Dates: start: 2017
  2. BENDEKA [Interacting]
     Active Substance: BENDAMUSTINE HYDROCHLORIDE
     Dosage: CYCLE 5
     Route: 065
     Dates: start: 2017, end: 20170717
  3. BENDEKA [Interacting]
     Active Substance: BENDAMUSTINE HYDROCHLORIDE
     Indication: CHRONIC LYMPHOCYTIC LEUKAEMIA
     Dosage: CYCLE 1
     Route: 065
     Dates: start: 201703
  4. BACTRIM [Interacting]
     Active Substance: SULFAMETHOXAZOLE\TRIMETHOPRIM
     Indication: PRODUCT USED FOR UNKNOWN INDICATION
     Route: 065
  5. ALLOPURINOL. [Interacting]
     Active Substance: ALLOPURINOL
     Indication: PRODUCT USED FOR UNKNOWN INDICATION
     Route: 065
  6. BENDEKA [Interacting]
     Active Substance: BENDAMUSTINE HYDROCHLORIDE
     Dosage: CYCLE 4
     Route: 065
     Dates: start: 2017
  7. BENDEKA [Interacting]
     Active Substance: BENDAMUSTINE HYDROCHLORIDE
     Dosage: CYCLE 3
     Route: 065
     Dates: start: 2017
  8. RITUXAN [Suspect]
     Active Substance: RITUXIMAB
     Indication: CHRONIC LYMPHOCYTIC LEUKAEMIA
     Route: 065

REACTIONS (9)
  - Erythema [Not Recovered/Not Resolved]
  - Blister rupture [Not Recovered/Not Resolved]
  - Skin swelling [Not Recovered/Not Resolved]
  - Infusion site pain [Unknown]
  - Fatigue [Unknown]
  - Infusion site extravasation [Unknown]
  - Drug interaction [Unknown]
  - Mass [Not Recovered/Not Resolved]
  - Asthenia [Unknown]

NARRATIVE: CASE EVENT DATE: 2017
